FAERS Safety Report 25698346 (Version 1)
Quarter: 2025Q3

REPORT INFORMATION
  Report Type: Spontaneous
  Country: BR (occurrence: BR)
  Receive Date: 20250819
  Receipt Date: 20250819
  Transmission Date: 20251021
  Serious: Yes (Other)
  Sender: ASTELLAS
  Company Number: BR-ASTELLAS-2025-AER-045172

PATIENT
  Age: 43 Year
  Sex: Female

DRUGS (2)
  1. CRESEMBA [Suspect]
     Active Substance: ISAVUCONAZONIUM SULFATE
     Indication: Bronchopulmonary aspergillosis
     Route: 065
     Dates: start: 20210308
  2. CYCLOSPORINE [Concomitant]
     Active Substance: CYCLOSPORINE
     Indication: Graft versus host disease
     Route: 065

REACTIONS (4)
  - Cytomegalovirus infection reactivation [Unknown]
  - Weight increased [Unknown]
  - Inflammation [Unknown]
  - Fibrosis [Unknown]

NARRATIVE: CASE EVENT DATE: 20210301
